FAERS Safety Report 4375227-8 (Version None)
Quarter: 2004Q2

REPORT INFORMATION
  Report Type: 
  Country: None (occurrence: None)
  Receive Date: 20040610
  Receipt Date: 20040531
  Transmission Date: 20050107
  Serious: Yes (Hospitalization)
  Sender: FDA-Public Use
  Company Number: PHBS2004JP07251

PATIENT
  Age: 75 Year
  Sex: Female

DRUGS (12)
  1. LOCHOL [Suspect]
     Indication: HYPERLIPIDAEMIA
     Dosage: 20 MG/DAY
     Route: 048
     Dates: start: 20020221, end: 20040522
  2. VOLTAREN [Concomitant]
     Dosage: 3 DF, UNK
     Route: 048
     Dates: end: 20040522
  3. PURSENNID [Concomitant]
     Dosage: 2 DF, UNK
     Route: 048
     Dates: end: 20040522
  4. NORVASC [Concomitant]
     Dosage: 5 MG, UNK
     Dates: end: 20040522
  5. LASIX [Concomitant]
     Dosage: 20 MG, UNK
     Route: 048
     Dates: end: 20040522
  6. NATRIX [Concomitant]
     Dosage: 1 MG, UNK
     Route: 048
     Dates: end: 20040522
  7. ACARDI [Concomitant]
     Dosage: 2.5 MG, UNK
     Route: 048
     Dates: end: 20040522
  8. NU-LOTAN [Concomitant]
     Dosage: 100 MG, UNK
     Route: 048
     Dates: end: 20040522
  9. BOUIOUGITOU [Concomitant]
     Dosage: 7.5 G, UNK
     Route: 048
     Dates: end: 20040522
  10. MYSLEE [Concomitant]
     Dosage: 10 MG, UNK
     Route: 048
     Dates: end: 20040522
  11. GASMOTIN [Concomitant]
     Dosage: 4 DF, UNK
     Route: 048
     Dates: end: 20040522
  12. TAKEPRON [Concomitant]
     Dosage: 30 MG, UNK
     Route: 048
     Dates: end: 20040522

REACTIONS (10)
  - ASPARTATE AMINOTRANSFERASE INCREASED [None]
  - BLOOD ALKALINE PHOSPHATASE INCREASED [None]
  - BLOOD CREATINE PHOSPHOKINASE INCREASED [None]
  - BLOOD CREATININE INCREASED [None]
  - BLOOD LACTATE DEHYDROGENASE INCREASED [None]
  - BLOOD UREA INCREASED [None]
  - BLOOD URIC ACID INCREASED [None]
  - C-REACTIVE PROTEIN INCREASED [None]
  - MALAISE [None]
  - MOBILITY DECREASED [None]
